FAERS Safety Report 4777140-0 (Version None)
Quarter: 2005Q3

REPORT INFORMATION
  Report Type: 
  Country: None (occurrence: None)
  Receive Date: 20050915
  Receipt Date: 20050831
  Transmission Date: 20060218
  Serious: Yes (Other)
  Sender: FDA-Public Use
  Company Number: 200508IM000473

PATIENT
  Age: 70 Year
  Sex: Male

DRUGS (1)
  1. ADVAFERON         (A643_INTERFERON ALFACON-1) [Suspect]
     Indication: HEPATITIS C
     Dosage: QD,

REACTIONS (2)
  - GASTRIC CANCER [None]
  - HEPATIC NEOPLASM MALIGNANT [None]
